FAERS Safety Report 13471782 (Version 1)
Quarter: 2017Q2

REPORT INFORMATION
  Report Type: Spontaneous
  Country: US (occurrence: US)
  Receive Date: 20170424
  Receipt Date: 20170424
  Transmission Date: 20170830
  Serious: No
  Sender: FDA-Public Use
  Company Number: US-PFIZER INC-2017175294

PATIENT
  Sex: Female

DRUGS (2)
  1. IBRANCE [Suspect]
     Active Substance: PALBOCICLIB
     Dosage: 125 MG, UNK
  2. LETROZOLE. [Suspect]
     Active Substance: LETROZOLE
     Dosage: UNK

REACTIONS (15)
  - Fatigue [Unknown]
  - Headache [Unknown]
  - Alopecia [Unknown]
  - Weight increased [Unknown]
  - Night sweats [Unknown]
  - Paraesthesia oral [Unknown]
  - Vision blurred [Unknown]
  - Dizziness [Unknown]
  - Paraesthesia [Unknown]
  - Lacrimation increased [Unknown]
  - Diarrhoea [Unknown]
  - Burning sensation [Unknown]
  - White blood cell count decreased [Unknown]
  - Nausea [Unknown]
  - Hypoaesthesia [Unknown]

NARRATIVE: CASE EVENT DATE: 2017
